FAERS Safety Report 5427827-1 (Version None)
Quarter: 2007Q3

REPORT INFORMATION
  Report Type: 
  Country: None (occurrence: None)
  Receive Date: 20070828
  Receipt Date: 20070814
  Transmission Date: 20080115
  Serious: Yes (Other)
  Sender: FDA-Public Use
  Company Number: US-ELI_LILLY_AND_COMPANY-US200707003065

PATIENT
  Age: 78 Year
  Sex: Female
  Weight: 70.748 kg

DRUGS (2)
  1. FORTEO [Suspect]
     Indication: OSTEOPOROSIS
     Dosage: 20 UG, DAILY (1/D)
     Dates: start: 20060501, end: 20070701
  2. VENTOLIN /SCH/ [Concomitant]
     Route: 055
     Dates: start: 20070701

REACTIONS (3)
  - INFECTION [None]
  - NEOPLASM MALIGNANT [None]
  - PNEUMONIA [None]
